FAERS Safety Report 6775761-7 (Version None)
Quarter: 2010Q2

REPORT INFORMATION
  Report Type: 
  Country: None (occurrence: None)
  Receive Date: 20100615
  Receipt Date: 20100603
  Transmission Date: 20101027
  Serious: Yes (Other)
  Sender: FDA-Public Use
  Company Number: 2009S1005801

PATIENT
  Age: 76 Year
  Sex: Male

DRUGS (6)
  1. PHOSPHOSODA FLAVOR NOT SPECIFIED [Suspect]
     Indication: COLONOSCOPY
     Dosage: 45 ML; X1; PO, 45 ML; X1; PO
     Route: 048
     Dates: start: 20070104, end: 20070104
  2. PHOSPHOSODA FLAVOR NOT SPECIFIED [Suspect]
     Indication: COLONOSCOPY
     Dosage: 45 ML; X1; PO, 45 ML; X1; PO
     Route: 048
     Dates: start: 20070104, end: 20070104
  3. NORVASC [Concomitant]
  4. BENICAR [Concomitant]
  5. NIASPAN [Concomitant]
  6. TIMOPTIC [Concomitant]

REACTIONS (3)
  - ANAEMIA [None]
  - HYPERTENSIVE NEPHROPATHY [None]
  - RENAL FAILURE CHRONIC [None]
